FAERS Safety Report 10373004 (Version 2)
Quarter: 2014Q3

REPORT INFORMATION
  Report Type: Spontaneous
  Country: US (occurrence: US)
  Receive Date: 20140808
  Receipt Date: 20140808
  Transmission Date: 20150326
  Serious: No
  Sender: FDA-Public Use
  Company Number: US-BRISTOL-MYERS SQUIBB COMPANY-19901172

PATIENT
  Age: 68 Year
  Sex: Female

DRUGS (1)
  1. SPRYCEL [Suspect]
     Active Substance: DASATINIB
     Indication: CHRONIC MYELOID LEUKAEMIA
     Dates: start: 20131024

REACTIONS (4)
  - Arthralgia [Unknown]
  - Constipation [Unknown]
  - Dry skin [Unknown]
  - Fatigue [Unknown]
